FAERS Safety Report 16670253 (Version 1)
Quarter: 2019Q3

REPORT INFORMATION
  Report Type: Report from Study
  Country: BR (occurrence: BR)
  Receive Date: 20190805
  Receipt Date: 20190805
  Transmission Date: 20191004
  Serious: Yes (Hospitalization, Other)
  Sender: FDA-Public Use
  Company Number: BR-SHIRE-BR201913951

PATIENT

DRUGS (4)
  1. FEIBA NF [Suspect]
     Active Substance: ANTI-INHIBITOR COAGULANT COMPLEX
     Dosage: 3500 INTERNATIONAL UNIT, AS REQ^D
     Route: 050
  2. FEIBA NF [Suspect]
     Active Substance: ANTI-INHIBITOR COAGULANT COMPLEX
     Indication: FACTOR VIII DEFICIENCY
     Dosage: 7000 INTERNATIONAL UNIT, 2X/DAY:BID
     Route: 050
     Dates: start: 19960402
  3. HEMO-8R [Suspect]
     Active Substance: ANTIHEMOPHILIC FACTOR, HUMAN RECOMBINANT
     Indication: PRODUCT USED FOR UNKNOWN INDICATION
     Route: 065
  4. FEIBA NF [Suspect]
     Active Substance: ANTI-INHIBITOR COAGULANT COMPLEX
     Indication: FACTOR IX DEFICIENCY
     Dosage: 5000 INTERNATIONAL UNIT, 1X/DAY:QD
     Route: 050

REACTIONS (6)
  - Pain [Not Recovered/Not Resolved]
  - Internal haemorrhage [Unknown]
  - Road traffic accident [Unknown]
  - Drug ineffective [Unknown]
  - Coagulation factor VIII level decreased [Unknown]
  - Weight decreased [Unknown]

NARRATIVE: CASE EVENT DATE: 20190403
